FAERS Safety Report 16668081 (Version 1)
Quarter: 2019Q3

REPORT INFORMATION
  Report Type: Spontaneous
  Country: US (occurrence: US)
  Receive Date: 20190619
  Receipt Date: 20190619
  Transmission Date: 20191004
  Serious: Yes (Hospitalization, Disabling, Other)
  Sender: FDA-Public Use
  Company Number: None

PATIENT
  Age: 65 Year
  Sex: Female
  Weight: 56.25 kg

DRUGS (4)
  1. EDARBI [Concomitant]
     Active Substance: AZILSARTAN KAMEDOXOMIL
  2. PROLIA [Suspect]
     Active Substance: DENOSUMAB
     Indication: OSTEOPOROSIS
     Dosage: ?          OTHER FREQUENCY:ONCE (Q 6 MONTHS)
     Dates: start: 20190205
  3. MANDIBULAR ORAL ORTHOTIC APPLIANCE [Concomitant]
  4. VITAMIN D [Concomitant]
     Active Substance: VITAMIN D NOS

REACTIONS (13)
  - Headache [None]
  - Mastication disorder [None]
  - Swelling face [None]
  - Ear pain [None]
  - Speech disorder [None]
  - Eating disorder [None]
  - Pain in jaw [None]
  - Malocclusion [None]
  - Tinnitus [None]
  - Unevaluable event [None]
  - Insomnia [None]
  - Hypertension [None]
  - Muscle twitching [None]

NARRATIVE: CASE EVENT DATE: 20190205
